FAERS Safety Report 25075315 (Version 1)
Quarter: 2025Q1

REPORT INFORMATION
  Report Type: Spontaneous
  Country: CN (occurrence: CN)
  Receive Date: 20250313
  Receipt Date: 20250313
  Transmission Date: 20250409
  Serious: Yes (Hospitalization, Other)
  Sender: CALLIDITAS THERAPEUTICS AB
  Company Number: CN-EVEREST-20250200074

PATIENT
  Age: 36 Year
  Sex: Female
  Weight: 41 kg

DRUGS (1)
  1. BUDESONIDE [Suspect]
     Active Substance: BUDESONIDE
     Indication: IgA nephropathy
     Dosage: 4 MILLIGRAM, QD
     Route: 048
     Dates: start: 20250107, end: 20250208

REACTIONS (3)
  - Gastric perforation [Recovering/Resolving]
  - Underdose [Unknown]
  - Abdominal discomfort [Recovered/Resolved]

NARRATIVE: CASE EVENT DATE: 20250107
